FAERS Safety Report 15390849 (Version 1)
Quarter: 2018Q3

REPORT INFORMATION
  Report Type: Spontaneous
  Country: US (occurrence: US)
  Receive Date: 20180910
  Receipt Date: 20180910
  Transmission Date: 20181010
  Serious: No
  Sender: FDA-Public Use
  Company Number: None

PATIENT
  Age: 60 Year
  Sex: Female

DRUGS (1)
  1. GLEEVEC [Suspect]
     Active Substance: IMATINIB MESYLATE
     Dates: start: 201305, end: 201804

REACTIONS (4)
  - Diarrhoea [None]
  - Muscle spasms [None]
  - Cardiac failure congestive [None]
  - Haemorrhage [None]

NARRATIVE: CASE EVENT DATE: 20180418
